FAERS Safety Report 9706465 (Version 2)
Quarter: 2013Q4

REPORT INFORMATION
  Report Type: Spontaneous
  Country: PH (occurrence: PH)
  Receive Date: 20131125
  Receipt Date: 20131125
  Transmission Date: 20140711
  Serious: Yes (Other)
  Sender: FDA-Public Use
  Company Number: PH-009507513-1305PHL011150

PATIENT
  Age: 61 Year
  Sex: Male

DRUGS (1)
  1. JANUMET [Suspect]
     Dosage: 1 DF, UNK
     Route: 048
     Dates: start: 200905

REACTIONS (4)
  - Neoplasm malignant [Unknown]
  - Bowel movement irregularity [Unknown]
  - Metabolic disorder [Unknown]
  - Hepatic enzyme increased [Unknown]
